FAERS Safety Report 6538221-4 (Version None)
Quarter: 2010Q1

REPORT INFORMATION
  Report Type: 
  Country: None (occurrence: None)
  Receive Date: 20100114
  Receipt Date: 20100106
  Transmission Date: 20100710
  Serious: Yes (Other)
  Sender: FDA-Public Use
  Company Number: US-CELGENEUS-163-21880-09120282

PATIENT
  Sex: Male

DRUGS (4)
  1. REVLIMID [Suspect]
     Indication: MULTIPLE MYELOMA
     Route: 048
     Dates: start: 20081101
  2. REVLIMID [Suspect]
     Dosage: 10-20MG
     Route: 048
     Dates: start: 20080101
  3. REVLIMID [Suspect]
     Dosage: 15-10MG
     Route: 048
     Dates: start: 20080401
  4. REVLIMID [Suspect]
     Route: 048
     Dates: start: 20080801

REACTIONS (7)
  - MASS [None]
  - MUSCULOSKELETAL CHEST PAIN [None]
  - NEUTROPENIA [None]
  - PAIN IN EXTREMITY [None]
  - RED BLOOD CELL COUNT DECREASED [None]
  - THROMBOCYTOPENIA [None]
  - WHITE BLOOD CELL COUNT DECREASED [None]
